FAERS Safety Report 14984964 (Version 2)
Quarter: 2018Q2

REPORT INFORMATION
  Report Type: Spontaneous
  Country: US (occurrence: US)
  Receive Date: 20180607
  Receipt Date: 20180611
  Transmission Date: 20180711
  Serious: Yes (Death, Life-Threatening, Other)
  Sender: FDA-Public Use
  Company Number: US-PFIZER INC-2018231969

PATIENT
  Age: 79 Year
  Sex: Female

DRUGS (8)
  1. PACLITAXEL. [Suspect]
     Active Substance: PACLITAXEL
     Dosage: UNK
  2. CARBOPLATIN. [Suspect]
     Active Substance: CARBOPLATIN
     Dosage: UNK
  3. GEMCITABINE HYDROCHLORIDE. [Suspect]
     Active Substance: GEMCITABINE HYDROCHLORIDE
     Indication: FALLOPIAN TUBE CANCER STAGE III
     Dosage: UNK UNK, CYCLIC
  4. TAMOXIFEN [Suspect]
     Active Substance: TAMOXIFEN
     Indication: FALLOPIAN TUBE CANCER STAGE III
     Dosage: UNK UNK, CYCLIC
  5. DOXORUBICIN HCL [Suspect]
     Active Substance: DOXORUBICIN HYDROCHLORIDE
     Indication: FALLOPIAN TUBE CANCER STAGE III
     Dosage: UNK UNK, CYCLIC, LIPOSOMAL DOXORUBICIN
  6. PACLITAXEL. [Suspect]
     Active Substance: PACLITAXEL
     Indication: FALLOPIAN TUBE CANCER STAGE III
     Dosage: UNK, 6 CYCLIC
  7. CARBOPLATIN. [Suspect]
     Active Substance: CARBOPLATIN
     Indication: FALLOPIAN TUBE CANCER STAGE III
     Dosage: UNK, 6 CYCLIC
  8. ANASTROZOLE. [Suspect]
     Active Substance: ANASTROZOLE
     Indication: FALLOPIAN TUBE CANCER STAGE III
     Dosage: UNK UNK, CYCLIC

REACTIONS (2)
  - Acute myeloid leukaemia [Fatal]
  - Second primary malignancy [Fatal]

NARRATIVE: CASE EVENT DATE: 2015
